FAERS Safety Report 9895715 (Version 1)
Quarter: 2014Q1

REPORT INFORMATION
  Report Type: Spontaneous
  Country: US (occurrence: US)
  Receive Date: 20140213
  Receipt Date: 20140213
  Transmission Date: 20141002
  Serious: No
  Sender: FDA-Public Use
  Company Number: US-BRISTOL-MYERS SQUIBB COMPANY-18972901

PATIENT
  Age: 30 Year
  Sex: Female
  Weight: 63.49 kg

DRUGS (4)
  1. ABATACEPT SUBQ INJECTION 125MG/ML [Suspect]
     Route: 058
  2. IBUPROFEN [Concomitant]
     Dosage: CAPS 200 MG
  3. METHOTREXATE TABS [Concomitant]
     Dosage: TABS 2.5 MG
  4. PREDNISONE [Concomitant]
     Dosage: TABS 1 MG

REACTIONS (1)
  - Musculoskeletal stiffness [Unknown]
